FAERS Safety Report 9326983 (Version 3)
Quarter: 2013Q3

REPORT INFORMATION
  Report Type: Spontaneous
  Country: US (occurrence: None)
  Receive Date: 20130530
  Receipt Date: 20130712
  Transmission Date: 20140515
  Serious: Yes (Other)
  Sender: FDA-Public Use
  Company Number: US-1198355

PATIENT
  Age: 60 Year
  Sex: Female

DRUGS (2)
  1. TIMOLOL MALEATE [Suspect]
     Indication: GLAUCOMA
     Route: 047
     Dates: start: 20130308, end: 20130414
  2. VITAMIN D [Concomitant]

REACTIONS (2)
  - Ageusia [None]
  - Dysgeusia [None]
